FAERS Safety Report 15017775 (Version 1)
Quarter: 2020Q3

REPORT INFORMATION
  Report Type: Spontaneous
  Country: BY (occurrence: BY)
  Receive Date: 20180615
  Receipt Date: 20180615
  Transmission Date: 20201104
  Serious: Yes (Disabling)
  Sender: FDA-Public Use
  Company Number: BY-PFIZER INC-2018240162

PATIENT
  Age: 42 Year
  Sex: Male
  Weight: 60 kg

DRUGS (19)
  1. TENOF EM [Concomitant]
     Dosage: UNK [EMTRICITABINE: 200 MG; TENOFOVIR DISOPROXIL FUMARATE: 300 MG]
     Dates: start: 20170928
  2. OMEPRAZOLE. [Concomitant]
     Active Substance: OMEPRAZOLE
     Dosage: UNK
     Dates: start: 20170928
  3. LINEZOLID. [Suspect]
     Active Substance: LINEZOLID
     Dosage: 600 MG, 1X/DAY
     Route: 048
     Dates: start: 20170928
  4. DELAMANID [Suspect]
     Active Substance: DELAMANID
     Dosage: 200 MG, 1X/DAY
     Route: 048
     Dates: start: 20170928
  5. MOTILIUM [Concomitant]
     Active Substance: DOMPERIDONE
  6. CLOFAZIMINE [Suspect]
     Active Substance: CLOFAZIMINE
     Dosage: 100 MG, DAILY
     Route: 048
  7. AMIKACIN. [Suspect]
     Active Substance: AMIKACIN
     Dosage: 1000 MG, 1X/DAY (7 DAYS/WEEK)
     Route: 030
     Dates: start: 20170928, end: 20171220
  8. CALCIUM GLUCONATE. [Concomitant]
     Active Substance: CALCIUM GLUCONATE
     Dosage: UNK
  9. PANCREATIN [Concomitant]
     Active Substance: PANCRELIPASE
     Dosage: UNK
  10. FLUCONAZOLE. [Concomitant]
     Active Substance: FLUCONAZOLE
     Dosage: UNK
  11. EFAVIRENZ. [Concomitant]
     Active Substance: EFAVIRENZ
     Dosage: UNK
     Dates: start: 20170928
  12. MOXIFLOXACIN. [Suspect]
     Active Substance: MOXIFLOXACIN
     Dosage: 400 MG, 1X/DAY
     Route: 048
     Dates: start: 20170928
  13. MOXIFLOXACIN. [Suspect]
     Active Substance: MOXIFLOXACIN
     Dosage: 100 MG, 1X/DAY
     Route: 048
  14. ZOPICLONE [Concomitant]
     Active Substance: ZOPICLONE
     Dosage: UNK
     Dates: start: 20170928
  15. ONDANSETRON [Concomitant]
     Active Substance: ONDANSETRON
     Dosage: UNK
  16. CLOFAZIMINE [Suspect]
     Active Substance: CLOFAZIMINE
     Dosage: 200 MG, 1X/DAY
     Route: 048
     Dates: start: 20170928
  17. AMIKACIN. [Suspect]
     Active Substance: AMIKACIN
     Dosage: 1000 MG, 3X/DAY (3 DAYS/WEEK)
     Route: 030
     Dates: start: 20171220
  18. PYRIDOXAL [Concomitant]
     Active Substance: PYRIDOXAL
     Dosage: UNK
     Dates: start: 20170928
  19. CHLORPROTHIXENE [Concomitant]
     Active Substance: CHLORPROTHIXENE
     Dosage: UNK
     Dates: start: 20170928

REACTIONS (1)
  - Hypoacusis [Recovering/Resolving]

NARRATIVE: CASE EVENT DATE: 20171024
